FAERS Safety Report 13661524 (Version 1)
Quarter: 2017Q2

REPORT INFORMATION
  Report Type: Spontaneous
  Country: US (occurrence: US)
  Receive Date: 20170616
  Receipt Date: 20170616
  Transmission Date: 20170830
  Serious: No
  Sender: FDA-Public Use
  Company Number: US-GILEAD-2017-0278331

PATIENT
  Age: 60 Year
  Sex: Female
  Weight: 75.3 kg

DRUGS (3)
  1. LISINOPRIL. [Concomitant]
     Active Substance: LISINOPRIL
  2. HARVONI [Suspect]
     Active Substance: LEDIPASVIR\SOFOSBUVIR
     Indication: HEPATITIS C
     Dosage: 1 DF, UNK
     Route: 048
     Dates: start: 20170306, end: 20170529
  3. IRON [Concomitant]
     Active Substance: IRON

REACTIONS (1)
  - Hepatitis C virus test positive [Recovered/Resolved]
